FAERS Safety Report 15482148 (Version 1)
Quarter: 2018Q4

REPORT INFORMATION
  Report Type: Spontaneous
  Country: US (occurrence: US)
  Receive Date: 20181003
  Receipt Date: 20181003
  Transmission Date: 20190205
  Serious: Yes (Disabling, Other)
  Sender: FDA-Public Use
  Company Number: None

PATIENT
  Age: 54 Year
  Sex: Female
  Weight: 81.45 kg

DRUGS (2)
  1. JARDIANCE [Suspect]
     Active Substance: EMPAGLIFLOZIN
     Indication: TYPE 2 DIABETES MELLITUS
     Dosage: ?          QUANTITY:7 TABLET(S);?
     Route: 048
     Dates: start: 20180901, end: 20180915
  2. JARDIANCE [Suspect]
     Active Substance: EMPAGLIFLOZIN

REACTIONS (10)
  - Pollakiuria [None]
  - Dysuria [None]
  - Therapy non-responder [None]
  - Intentional product use issue [None]
  - Self-medication [None]
  - Fungal infection [None]
  - Discomfort [None]
  - Condition aggravated [None]
  - Blood glucose decreased [None]
  - Pruritus [None]

NARRATIVE: CASE EVENT DATE: 20180901
